FAERS Safety Report 19950282 (Version 1)
Quarter: 2021Q4

REPORT INFORMATION
  Report Type: Spontaneous
  Country: PT (occurrence: PT)
  Receive Date: 20211013
  Receipt Date: 20211013
  Transmission Date: 20220303
  Serious: Yes (Other)
  Sender: FDA-Public Use
  Company Number: PT-LUPIN PHARMACEUTICALS INC.-2021-19452

PATIENT
  Age: 30 Year
  Sex: Female

DRUGS (6)
  1. TRIAMCINOLONE [Suspect]
     Active Substance: TRIAMCINOLONE
     Indication: Steroid therapy
     Dosage: TWO INJECTIONS WERE ADMINISTERED ON TWO CONSECUTIVE DAYS (DAY 15 AND 16) AND THIRD INJECTION WAS ADM
     Route: 057
  2. DEXAMETHASONE SODIUM PHOSPHATE [Suspect]
     Active Substance: DEXAMETHASONE SODIUM PHOSPHATE
     Indication: Steroid therapy
     Dosage: 5ID
     Route: 065
  3. DEXAMETHASONE SODIUM PHOSPHATE [Suspect]
     Active Substance: DEXAMETHASONE SODIUM PHOSPHATE
     Dosage: SINGLE DROP DAILY
     Route: 065
  4. PREDNISOLONE [Suspect]
     Active Substance: PREDNISOLONE
     Indication: Steroid therapy
     Dosage: 60 MILLIGRAM, QD
     Route: 048
  5. PREDNISOLONE [Suspect]
     Active Substance: PREDNISOLONE
     Dosage: 20 MILLIGRAM
     Route: 065
  6. Floxedol [Concomitant]
     Indication: Antibiotic therapy
     Dosage: 5ID
     Route: 061

REACTIONS (2)
  - Scopulariopsis infection [Recovered/Resolved]
  - Keratitis fungal [Recovered/Resolved]
